FAERS Safety Report 13987391 (Version 2)
Quarter: 2017Q4

REPORT INFORMATION
  Report Type: Spontaneous
  Country: JP (occurrence: JP)
  Receive Date: 20170919
  Receipt Date: 20171108
  Transmission Date: 20180321
  Serious: Yes (Hospitalization)
  Sender: FDA-Public Use
  Company Number: JP-JNJFOC-20170914910

PATIENT
  Age: 82 Year
  Sex: Female
  Weight: 40 kg

DRUGS (13)
  1. ELIETEN S [Concomitant]
     Route: 065
  2. LYRICA [Concomitant]
     Active Substance: PREGABALIN
     Route: 048
  3. FLUITRAN [Concomitant]
     Active Substance: TRICHLORMETHIAZIDE
     Route: 048
  4. TRAMCET [Suspect]
     Active Substance: ACETAMINOPHEN\TRAMADOL
     Indication: PAIN
     Route: 048
     Dates: start: 20170807, end: 20170807
  5. ATORVASTATIN [Concomitant]
     Active Substance: ATORVASTATIN
     Route: 048
  6. BROTIZOLAM [Concomitant]
     Active Substance: BROTIZOLAM
     Route: 048
  7. SENNOSIDE [Concomitant]
     Active Substance: SENNOSIDES
     Route: 048
  8. REBAMIPIDE [Concomitant]
     Active Substance: REBAMIPIDE
     Route: 065
  9. CYMBALTA [Concomitant]
     Active Substance: DULOXETINE HYDROCHLORIDE
     Route: 048
  10. AMLODIPINE BESILATE [Concomitant]
     Active Substance: AMLODIPINE BESYLATE
     Route: 048
  11. PARIET [Concomitant]
     Active Substance: RABEPRAZOLE SODIUM
     Route: 048
  12. MAGMITT [Concomitant]
     Active Substance: MAGNESIUM OXIDE
     Route: 048
  13. LYRICA [Concomitant]
     Active Substance: PREGABALIN
     Route: 048

REACTIONS (2)
  - Nausea [Recovered/Resolved]
  - Hospitalisation [Unknown]

NARRATIVE: CASE EVENT DATE: 20170807
